FAERS Safety Report 10247721 (Version 1)
Quarter: 2014Q2

REPORT INFORMATION
  Report Type: Spontaneous
  Country: GB (occurrence: GB)
  Receive Date: 20140619
  Receipt Date: 20140619
  Transmission Date: 20141212
  Serious: Yes (Life-Threatening, Hospitalization)
  Sender: FDA-Public Use
  Company Number: PHHY2014GB071780

PATIENT
  Sex: 0

DRUGS (12)
  1. ALLOPURINOL [Suspect]
     Indication: HYPERURICAEMIA
     Dosage: 100 MG, UNK
     Route: 048
     Dates: start: 20140511
  2. ALLOPURINOL [Suspect]
     Indication: GOUT
  3. AZATHIOPRINE [Suspect]
     Indication: LUPUS NEPHRITIS
     Dosage: 25 MG, UNK
     Route: 048
     Dates: start: 1992
  4. ALFACALCIDOL [Concomitant]
  5. BUDESONIDE W/FORMOTEROL FUMARATE [Concomitant]
  6. DIGOXIN [Concomitant]
  7. FUROSEMIDE [Concomitant]
  8. LISINOPRIL [Concomitant]
  9. PREDNISOLONE [Concomitant]
     Indication: LYMPHANGIOLEIOMYOMATOSIS
  10. SALBUTAMOL [Concomitant]
  11. SECURON [Concomitant]
  12. WARFARIN SODIUM [Concomitant]

REACTIONS (6)
  - Septic shock [Recovering/Resolving]
  - Renal failure [Unknown]
  - Thrombocytopenia [Recovering/Resolving]
  - Malaise [Unknown]
  - Pyrexia [Unknown]
  - Drug interaction [Unknown]
